FAERS Safety Report 5574033-6 (Version None)
Quarter: 2007Q4

REPORT INFORMATION
  Report Type: 
  Country: None (occurrence: None)
  Receive Date: 20071226
  Receipt Date: 20071219
  Transmission Date: 20080405
  Serious: Yes (Other)
  Sender: FDA-Public Use
  Company Number: US-GILEAD-2007-0014645

PATIENT
  Sex: Male
  Weight: 93.07 kg

DRUGS (12)
  1. LETAIRIS [Suspect]
     Indication: PULMONARY HYPERTENSION
     Route: 048
     Dates: start: 20071031, end: 20071212
  2. LETAIRIS [Suspect]
     Route: 048
     Dates: start: 20071001, end: 20071030
  3. LASIX [Concomitant]
     Route: 048
  4. REMODULIN [Concomitant]
     Indication: PULMONARY HYPERTENSION
     Route: 058
     Dates: start: 20061017
  5. PLAQUENIL [Concomitant]
     Route: 048
  6. PROTONIX [Concomitant]
     Route: 048
  7. ARAVA [Concomitant]
     Route: 048
  8. OXYGEN [Concomitant]
     Route: 055
  9. ASPIRIN [Concomitant]
     Route: 048
  10. NOVOLIN 50/50 [Concomitant]
     Route: 058
  11. FOLIC ACID [Concomitant]
     Route: 048
  12. POTASSIUM CHLORIDE [Concomitant]
     Route: 048

REACTIONS (2)
  - ANAEMIA [None]
  - BLISTER [None]
